FAERS Safety Report 21396901 (Version 1)
Quarter: 2022Q3

REPORT INFORMATION
  Report Type: Spontaneous
  Country: NO (occurrence: NO)
  Receive Date: 20220930
  Receipt Date: 20220930
  Transmission Date: 20221027
  Serious: Yes (Life-Threatening, Hospitalization, Other)
  Sender: FDA-Public Use
  Company Number: None

PATIENT

DRUGS (3)
  1. LAMICTAL [Suspect]
     Active Substance: LAMOTRIGINE
     Indication: Mood swings
     Dosage: 100 MG, BID
     Route: 065
     Dates: end: 20220920
  2. BRINTELLIX [Concomitant]
     Active Substance: VORTIOXETINE HYDROBROMIDE
     Indication: Mood swings
     Dosage: 20 MG (UNKNOWN HOW OFTEN PRODUCT IS TAKEN)
     Route: 065
  3. PHENERGAN [Concomitant]
     Active Substance: PROMETHAZINE HYDROCHLORIDE
     Indication: Insomnia
     Dosage: UNK
     Route: 065

REACTIONS (18)
  - Headache [Recovering/Resolving]
  - Syncope [Unknown]
  - Hallucination [Unknown]
  - Anger [Recovering/Resolving]
  - Dizziness [Recovering/Resolving]
  - Anxiety [Recovering/Resolving]
  - Amnesia [Recovering/Resolving]
  - Asthenia [Recovering/Resolving]
  - Insomnia [Unknown]
  - Headache [Unknown]
  - Nightmare [Unknown]
  - Neck pain [Unknown]
  - Chills [Unknown]
  - Vomiting [Unknown]
  - Cold sweat [Unknown]
  - Movement disorder [Unknown]
  - Nausea [Unknown]
  - Impaired quality of life [Unknown]

NARRATIVE: CASE EVENT DATE: 20220228
